FAERS Safety Report 13991813 (Version 1)
Quarter: 2017Q3

REPORT INFORMATION
  Report Type: Spontaneous
  Country: US (occurrence: US)
  Receive Date: 20170920
  Receipt Date: 20170920
  Transmission Date: 20171128
  Serious: No
  Sender: FDA-Public Use
  Company Number: US-JNJFOC-20170808434

PATIENT
  Age: 71 Year
  Sex: Male

DRUGS (2)
  1. RISPERDAL CONSTA [Suspect]
     Active Substance: RISPERIDONE
     Indication: PRODUCT USED FOR UNKNOWN INDICATION
     Dosage: 50 MG PLUS 25 MG
     Route: 030
  2. OLANZAPINE. [Concomitant]
     Active Substance: OLANZAPINE
     Route: 065

REACTIONS (4)
  - Underdose [Unknown]
  - Off label use [Unknown]
  - Incorrect dose administered [Unknown]
  - Device occlusion [Unknown]

NARRATIVE: CASE EVENT DATE: 20170731
